FAERS Safety Report 5026914-X (Version None)
Quarter: 2006Q2

REPORT INFORMATION
  Report Type: 
  Country: None (occurrence: None)
  Receive Date: 20060609
  Receipt Date: 20060602
  Transmission Date: 20061013
  Serious: Yes (Death)
  Sender: FDA-Public Use
  Company Number: HQWYE531927JAN06

PATIENT
  Age: 58 Year
  Sex: Male

DRUGS (4)
  1. MYLOTARG [Suspect]
     Indication: ACUTE MYELOID LEUKAEMIA
     Dosage: A SINGLE 9MG/M^2 DOSE, INTRAVENOUS DRIP
     Route: 042
     Dates: start: 20051013, end: 20051013
  2. TIENAM (CILASTATIN/IMIPENEM) [Concomitant]
  3. AMIKACIN SULFATE [Concomitant]
  4. PRODIF (FOSFLUCONAZOLE) [Concomitant]

REACTIONS (7)
  - BACTERIAL INFECTION [None]
  - BLOOD CREATININE DECREASED [None]
  - C-REACTIVE PROTEIN INCREASED [None]
  - HAEMATOCRIT DECREASED [None]
  - HAEMOGLOBIN DECREASED [None]
  - PLATELET COUNT DECREASED [None]
  - SEPSIS [None]
